FAERS Safety Report 21781562 (Version 1)
Quarter: 2022Q4

REPORT INFORMATION
  Report Type: Report from Study
  Country: CN (occurrence: CN)
  Receive Date: 20221227
  Receipt Date: 20221227
  Transmission Date: 20230113
  Serious: Yes (Other)
  Sender: FDA-Public Use
  Company Number: CN-AMGEN-CHNSL2022124631

PATIENT
  Age: 64 Year
  Sex: Female

DRUGS (2)
  1. XGEVA [Suspect]
     Active Substance: DENOSUMAB
     Indication: Breast cancer metastatic
     Dosage: 120 MILLIGRAM, QMO
     Route: 065
     Dates: start: 20210318
  2. XGEVA [Suspect]
     Active Substance: DENOSUMAB
     Indication: Metastases to bone

REACTIONS (3)
  - Jaw disorder [Unknown]
  - Tooth loss [Unknown]
  - Oral mucosal exfoliation [Unknown]

NARRATIVE: CASE EVENT DATE: 20220101
